FAERS Safety Report 20896428 (Version 2)
Quarter: 2022Q3

REPORT INFORMATION
  Report Type: Spontaneous
  Country: US (occurrence: US)
  Receive Date: 20220531
  Receipt Date: 20220829
  Transmission Date: 20221027
  Serious: Yes (Other)
  Sender: FDA-Public Use
  Company Number: US-PFIZER INC-202200440461

PATIENT

DRUGS (9)
  1. RIFABUTIN [Suspect]
     Active Substance: RIFABUTIN
     Indication: Staphylococcal infection
     Dosage: 300 MG, DAILY(WAS STARTED WITHIN 4 TO 7 DAYS OF SURGICAL INTERVENTION IN ALL CASES)
  2. RIFABUTIN [Suspect]
     Active Substance: RIFABUTIN
     Indication: Spinal cord infection
     Dosage: UNK
     Route: 048
  3. CEFAZOLIN [Suspect]
     Active Substance: CEFAZOLIN
     Indication: Staphylococcal infection
     Dosage: UNK
     Route: 042
  4. CEFAZOLIN [Suspect]
     Active Substance: CEFAZOLIN
     Indication: Spinal cord infection
  5. DAPTOMYCIN [Concomitant]
     Active Substance: DAPTOMYCIN
     Indication: Staphylococcal infection
     Dosage: UNK
     Route: 042
  6. DAPTOMYCIN [Concomitant]
     Active Substance: DAPTOMYCIN
     Indication: Spinal cord infection
  7. APIXABAN [Concomitant]
     Active Substance: APIXABAN
     Dosage: UNK
  8. ATORVASTATIN [Concomitant]
     Active Substance: ATORVASTATIN
     Dosage: UNK
  9. OXYCODONE [Concomitant]
     Active Substance: OXYCODONE
     Dosage: UNK

REACTIONS (3)
  - Blood creatinine increased [Unknown]
  - Leukopenia [Unknown]
  - Off label use [Unknown]
